FAERS Safety Report 4936734-X (Version None)
Quarter: 2006Q1

REPORT INFORMATION
  Report Type: 
  Country: None (occurrence: None)
  Receive Date: 20060302
  Receipt Date: 20060209
  Transmission Date: 20060701
  Serious: Yes (Other)
  Sender: FDA-Public Use
  Company Number: IT200602003211

PATIENT
  Age: 55 Year
  Sex: Female

DRUGS (2)
  1. ZYPREXA [Suspect]
     Indication: DRUG WITHDRAWAL SYNDROME
     Dosage: 10 MG, DAILY (1/D), ORAL ; 5 MG, DAILY (1/D), ORAL
     Route: 048
     Dates: start: 19990301, end: 19990701
  2. ZYPREXA [Suspect]
     Indication: DRUG WITHDRAWAL SYNDROME
     Dosage: 10 MG, DAILY (1/D), ORAL ; 5 MG, DAILY (1/D), ORAL
     Route: 048
     Dates: start: 19990801, end: 19990801

REACTIONS (8)
  - ANXIETY DISORDER [None]
  - ASTHENIA [None]
  - DYSTONIA [None]
  - FATIGUE [None]
  - INSOMNIA [None]
  - MORBID THOUGHTS [None]
  - SOMNOLENCE [None]
  - THINKING ABNORMAL [None]
